FAERS Safety Report 14142512 (Version 1)
Quarter: 2017Q4

REPORT INFORMATION
  Report Type: Other
  Country: IN (occurrence: IN)
  Receive Date: 20171030
  Receipt Date: 20171030
  Transmission Date: 20180321
  Serious: Yes (Other)
  Sender: FDA-Public Use
  Company Number: IN-EMD SERONO-8198665

PATIENT
  Sex: Female

DRUGS (2)
  1. RECOMBINANT HUMAN FOLLICLE-STIMULATING HORMONE (R-HFSH) [Suspect]
     Active Substance: FOLLITROPIN
     Indication: OVULATION INDUCTION
     Dosage: FROM 2ND TO 10TH DAY OF MENSTRUAL CYCLE
     Route: 030
  2. LEUPROLIDE                         /00726901/ [Suspect]
     Active Substance: LEUPROLIDE
     Indication: OVULATION INDUCTION
     Dosage: FROM 2ND TO 10TH DAY OF MENSTRUAL CYCLE
     Route: 058

REACTIONS (1)
  - Foetal death [Recovered/Resolved]
